FAERS Safety Report 24125079 (Version 2)
Quarter: 2024Q3

REPORT INFORMATION
  Report Type: Spontaneous
  Country: FR (occurrence: FR)
  Receive Date: 20240723
  Receipt Date: 20240816
  Transmission Date: 20241017
  Serious: No
  Sender: ALK-ABELLO
  Company Number: FR-ALK-ABELLO A/S-2024AA002912

PATIENT

DRUGS (1)
  1. ACARIZAX [Suspect]
     Active Substance: DERMATOPHAGOIDES FARINAE\DERMATOPHAGOIDES PTERONYSSINUS
     Indication: Immune tolerance induction
     Dosage: UNK
     Route: 060
     Dates: start: 2021

REACTIONS (1)
  - Aphthous ulcer [Not Recovered/Not Resolved]

NARRATIVE: CASE EVENT DATE: 20240101
